FAERS Safety Report 5120426-0 (Version None)
Quarter: 2006Q4

REPORT INFORMATION
  Report Type: 
  Country: None (occurrence: None)
  Receive Date: 20061004
  Receipt Date: 20060928
  Transmission Date: 20070319
  Serious: Yes (Life-Threatening, Other)
  Sender: FDA-Public Use
  Company Number: GB-GLAXOSMITHKLINE-B0440690A

PATIENT
  Age: 54 Year
  Sex: Female

DRUGS (5)
  1. AUGMENTIN [Suspect]
     Indication: ABSCESS DRAINAGE
     Dosage: 1.2G UNKNOWN
     Route: 042
     Dates: start: 20060805, end: 20060805
  2. ERYTHROMYCIN [Concomitant]
     Indication: ABSCESS
  3. FLUCLOXACILLIN [Concomitant]
     Indication: ABSCESS
     Route: 048
  4. METRONIDAZOLE [Concomitant]
     Indication: ABSCESS
  5. MIDAZOLAM HCL [Concomitant]
     Route: 042
     Dates: start: 20060805

REACTIONS (5)
  - ANAPHYLACTIC REACTION [None]
  - CIRCULATORY COLLAPSE [None]
  - DYSPNOEA [None]
  - HYPOTENSION [None]
  - URTICARIA [None]
